FAERS Safety Report 7069688-3 (Version None)
Quarter: 2010Q4

REPORT INFORMATION
  Report Type: 
  Country: None (occurrence: None)
  Receive Date: 20101028
  Receipt Date: 20100422
  Transmission Date: 20110411
  Serious: No
  Sender: FDA-Public Use
  Company Number: US-WYE-H14860610

PATIENT
  Sex: Female
  Weight: 81.72 kg

DRUGS (4)
  1. EFFEXOR [Suspect]
     Indication: DEPRESSION
     Route: 048
     Dates: start: 19960101, end: 20090101
  2. EFFEXOR [Suspect]
     Dosage: SWITCHED TO GENERIC 75 MG DAILY SUMMER 2009
     Dates: start: 20090101, end: 20100301
  3. LEVOTHYROXINE [Concomitant]
  4. CLONAZEPAM [Concomitant]

REACTIONS (4)
  - DRUG EFFECT DECREASED [None]
  - DRUG WITHDRAWAL SYNDROME [None]
  - INTENTIONAL DRUG MISUSE [None]
  - PARAESTHESIA [None]
